FAERS Safety Report 7482684-7 (Version None)
Quarter: 2011Q2

REPORT INFORMATION
  Report Type: 
  Country: None (occurrence: None)
  Receive Date: 20110516
  Receipt Date: 20110510
  Transmission Date: 20111010
  Serious: Yes (Hospitalization, Other)
  Sender: FDA-Public Use
  Company Number: CA-ABBOTT-11P-028-0719500-00

PATIENT
  Sex: Male
  Weight: 70.824 kg

DRUGS (4)
  1. VITAMIN B-12 [Concomitant]
     Indication: VITAMIN SUPPLEMENTATION
     Dosage: 100 MCG MONTHLY
     Dates: start: 20010101
  2. HUMIRA [Suspect]
     Indication: CROHN'S DISEASE
     Route: 058
     Dates: start: 20080925
  3. PURINETHOL [Concomitant]
     Indication: CROHN'S DISEASE
     Dosage: 50 MG ONCE DAILY
     Route: 048
     Dates: start: 20010101
  4. RINGER'S [Concomitant]
     Indication: PRODUCT USED FOR UNKNOWN INDICATION
     Dosage: CONTINUOUS IV (100 ML/H)
     Route: 042
     Dates: start: 20110415

REACTIONS (8)
  - SEPTIC SHOCK [None]
  - KIDNEY INFECTION [None]
  - CHEST X-RAY ABNORMAL [None]
  - ATELECTASIS [None]
  - URINARY TRACT INFECTION [None]
  - NEPHROLITHIASIS [None]
  - ABDOMINAL PAIN [None]
  - RENAL CYST [None]
